FAERS Safety Report 9282570 (Version 1)
Quarter: 2013Q2

REPORT INFORMATION
  Report Type: Spontaneous
  Country: US (occurrence: US)
  Receive Date: 20130510
  Receipt Date: 20130510
  Transmission Date: 20140414
  Serious: No
  Sender: FDA-Public Use
  Company Number: US-B.I. PHARMACEUTICALS,INC./RIDGEFIELD-2013-BI-13107BP

PATIENT
  Sex: Female
  Weight: 94 kg

DRUGS (1)
  1. MIRAPEX [Suspect]
     Indication: RESTLESS LEGS SYNDROME
     Dosage: 1 MG
     Route: 048
     Dates: start: 2009

REACTIONS (4)
  - Parkinson^s disease [Not Recovered/Not Resolved]
  - Diabetes mellitus [Not Recovered/Not Resolved]
  - Hallucination [Recovered/Resolved]
  - Spinal pain [Not Recovered/Not Resolved]
